FAERS Safety Report 6160492-7 (Version None)
Quarter: 2009Q2

REPORT INFORMATION
  Report Type: 
  Country: None (occurrence: None)
  Receive Date: 20090415
  Receipt Date: 20090415
  Transmission Date: 20091009
  Serious: No
  Sender: FDA-Public Use
  Company Number: None

PATIENT
  Age: 30 Year
  Sex: Female
  Weight: 104.3273 kg

DRUGS (2)
  1. ZYRTEC ALLERGY [Suspect]
     Indication: ASTHMA
     Dosage: 10MG A PILL 1 PILL PER DAY PO JUNE ' 08 TO NOW
     Route: 048
     Dates: start: 20080601
  2. ZYRTEC ALLERGY [Suspect]
     Indication: MULTIPLE ALLERGIES
     Dosage: 10MG A PILL 1 PILL PER DAY PO JUNE ' 08 TO NOW
     Route: 048
     Dates: start: 20080601

REACTIONS (3)
  - DRUG WITHDRAWAL SYNDROME [None]
  - FATIGUE [None]
  - PRURITUS GENERALISED [None]
